FAERS Safety Report 8241642-5 (Version None)
Quarter: 2012Q1

REPORT INFORMATION
  Report Type: 
  Country: None (occurrence: None)
  Receive Date: 20120328
  Receipt Date: 20120319
  Transmission Date: 20120608
  Serious: Yes (Other)
  Sender: FDA-Public Use
  Company Number: FI-ABBOTT-12P-055-0909622-00

PATIENT
  Sex: Female

DRUGS (13)
  1. PREDNISOLONE [Concomitant]
     Indication: PRODUCT USED FOR UNKNOWN INDICATION
  2. ENBREL [Suspect]
     Dates: start: 20070606, end: 20090805
  3. PARA-TABS [Concomitant]
     Indication: PRODUCT USED FOR UNKNOWN INDICATION
  4. IBUPROFEN [Concomitant]
     Indication: PRODUCT USED FOR UNKNOWN INDICATION
  5. IMURAN [Concomitant]
     Indication: PRODUCT USED FOR UNKNOWN INDICATION
  6. OXIKLORIN [Concomitant]
     Indication: PRODUCT USED FOR UNKNOWN INDICATION
  7. NALTREXONE HYDROCHLORIDE [Concomitant]
     Indication: PRODUCT USED FOR UNKNOWN INDICATION
     Route: 048
  8. HUMIRA [Suspect]
     Indication: PRODUCT USED FOR UNKNOWN INDICATION
     Route: 058
     Dates: start: 20040401, end: 20050401
  9. ENBREL [Suspect]
     Indication: JUVENILE ARTHRITIS
     Dates: start: 20000601, end: 20010901
  10. FELDENE GEL [Concomitant]
     Indication: PRODUCT USED FOR UNKNOWN INDICATION
  11. FOLIC ACID [Concomitant]
     Indication: PRODUCT USED FOR UNKNOWN INDICATION
  12. KALCIPOS-D [Concomitant]
     Indication: PRODUCT USED FOR UNKNOWN INDICATION
     Dosage: TWICE DAILY
  13. DITRIM DUPLO [Concomitant]
     Indication: ANTIFUNGAL PROPHYLAXIS
     Dosage: ONCE DAILY THREE DAYS A WEEK

REACTIONS (4)
  - LUNG CONSOLIDATION [None]
  - CONVULSION [None]
  - HAEMANGIOMA [None]
  - MYCOBACTERIUM AVIUM COMPLEX INFECTION [None]
